FAERS Safety Report 4896649-2 (Version None)
Quarter: 2005Q4

REPORT INFORMATION
  Report Type: 
  Country: None (occurrence: None)
  Receive Date: 20051223
  Receipt Date: 20050901
  Transmission Date: 20060501
  Serious: No
  Sender: FDA-Public Use
  Company Number: 05P-163-0310072-00

PATIENT
  Age: 53 Year
  Sex: Female
  Weight: 82.5547 kg

DRUGS (11)
  1. HUMIRA [Suspect]
     Indication: PSORIATIC ARTHROPATHY
     Dosage: 40 MG, 1 IN 2 WK, SUBCUTANEOUS
     Route: 058
     Dates: start: 20050818
  2. VOLTARIN [Concomitant]
  3. LEXAPRO [Concomitant]
  4. CANDESARTAN CILEXETIL [Concomitant]
  5. SINEMET [Concomitant]
  6. ESOMEPRAZOLE [Concomitant]
  7. HYDROCHLOROTHIAZIDE [Concomitant]
  8. ATORVASTATIN CALCIUM [Concomitant]
  9. HYDROCODONE BITARTRATE [Concomitant]
  10. CALCIUM CARBONATE [Concomitant]
  11. FOLIC ACID [Concomitant]

REACTIONS (1)
  - INJECTION SITE RASH [None]
